FAERS Safety Report 9992450 (Version 2)
Quarter: 2014Q1

REPORT INFORMATION
  Report Type: Spontaneous
  Country: JP (occurrence: JP)
  Receive Date: 20140310
  Receipt Date: 20140324
  Transmission Date: 20141002
  Serious: Yes (Life-Threatening, Hospitalization)
  Sender: FDA-Public Use
  Company Number: JP-GLAXOSMITHKLINE-B0974960A

PATIENT
  Age: 63 Year
  Sex: Male

DRUGS (3)
  1. SERETIDE (50MCG/250MCG) [Suspect]
     Indication: ASTHMA
     Route: 055
  2. THEODUR [Concomitant]
     Indication: ASTHMA
     Dosage: 200MG TWICE PER DAY
     Route: 048
  3. PREDONINE [Concomitant]
     Indication: ASTHMA
     Route: 048

REACTIONS (5)
  - Stress cardiomyopathy [Recovering/Resolving]
  - Electrocardiogram ST segment elevation [Recovering/Resolving]
  - Cardiac enzymes increased [Recovering/Resolving]
  - Echocardiogram abnormal [Recovering/Resolving]
  - Overdose [Unknown]
